FAERS Safety Report 12782928 (Version 1)
Quarter: 2016Q3

REPORT INFORMATION
  Report Type: Spontaneous
  Country: US (occurrence: US)
  Receive Date: 20160927
  Receipt Date: 20160927
  Transmission Date: 20161109
  Serious: No
  Sender: FDA-Public Use
  Company Number: US-PFIZER INC-2016445232

PATIENT
  Age: 68 Year
  Sex: Female

DRUGS (2)
  1. TETRACYCLINE HCL [Suspect]
     Active Substance: TETRACYCLINE HYDROCHLORIDE
     Dosage: UNK
  2. ATIONYL [Suspect]
     Active Substance: ADEMETIONINE SULFATE TOSILATE
     Dosage: UNK

REACTIONS (1)
  - Drug hypersensitivity [Unknown]
